FAERS Safety Report 21788974 (Version 2)
Quarter: 2023Q1

REPORT INFORMATION
  Report Type: Spontaneous
  Country: FR (occurrence: FR)
  Receive Date: 20221228
  Receipt Date: 20230110
  Transmission Date: 20230418
  Serious: Yes (Other)
  Sender: FDA-Public Use
  Company Number: None

PATIENT
  Age: 71 Year
  Sex: Female
  Weight: 87 kg

DRUGS (12)
  1. CAYSTON [Suspect]
     Active Substance: AZTREONAM
     Indication: Pyelonephritis acute
     Dosage: 2 G, QD
     Route: 042
     Dates: start: 20221111, end: 20221111
  2. CAYSTON [Suspect]
     Active Substance: AZTREONAM
     Indication: Bacterial pyelonephritis
     Dosage: 2 G, QD, CONTINUOUS
     Route: 042
     Dates: start: 20221112, end: 20221114
  3. CAYSTON [Suspect]
     Active Substance: AZTREONAM
     Indication: Endocarditis
     Dosage: 3 G, QD, CONTINUOUS
     Route: 042
     Dates: start: 20221114, end: 20221115
  4. DAPTOMYCIN [Suspect]
     Active Substance: DAPTOMYCIN
     Indication: Pyelonephritis acute
     Dosage: 800 MG, QOD
     Route: 042
     Dates: start: 20221114, end: 20221115
  5. DAPTOMYCIN [Suspect]
     Active Substance: DAPTOMYCIN
     Indication: Bacterial pyelonephritis
     Dosage: 700 MG, QOD
     Route: 042
     Dates: start: 20221111, end: 20221114
  6. METRONIDAZOLE [Concomitant]
     Active Substance: METRONIDAZOLE
     Indication: Pyelonephritis acute
     Dosage: 500 MG, QD
     Route: 042
     Dates: start: 20221111, end: 20221111
  7. METRONIDAZOLE [Concomitant]
     Active Substance: METRONIDAZOLE
     Indication: Bacterial pyelonephritis
     Dosage: 250 MG, TID
     Route: 048
     Dates: start: 20221114, end: 20221115
  8. METRONIDAZOLE [Concomitant]
     Active Substance: METRONIDAZOLE
     Dosage: 500 MG, TID
     Route: 042
     Dates: start: 20221114, end: 20221114
  9. METRONIDAZOLE [Concomitant]
     Active Substance: METRONIDAZOLE
     Dosage: 250 MG, TID
     Route: 042
     Dates: start: 20221111, end: 20221114
  10. AZTREONAM [Suspect]
     Active Substance: AZTREONAM
     Indication: Bacterial pyelonephritis
     Dosage: 2 G, QD
     Route: 055
     Dates: start: 20221111, end: 20221111
  11. AZTREONAM [Suspect]
     Active Substance: AZTREONAM
     Indication: Endocarditis
     Dosage: 2 G, BID
     Route: 055
     Dates: start: 20221112, end: 20221114
  12. AZTREONAM [Suspect]
     Active Substance: AZTREONAM
     Indication: Pyelonephritis acute
     Dosage: 3 G, QD
     Route: 055
     Dates: start: 20221114, end: 20221115

REACTIONS (1)
  - Cholestatic liver injury [Recovering/Resolving]

NARRATIVE: CASE EVENT DATE: 20221112
